FAERS Safety Report 5303265-7 (Version None)
Quarter: 2007Q2

REPORT INFORMATION
  Report Type: 
  Country: None (occurrence: None)
  Receive Date: 20070420
  Receipt Date: 20070405
  Transmission Date: 20071010
  Serious: Yes (Life-Threatening)
  Sender: FDA-Public Use
  Company Number: JP-GENENTECH-238185

PATIENT
  Sex: Female
  Weight: 52 kg

DRUGS (5)
  1. HERCEPTIN [Suspect]
     Indication: BREAST CANCER
     Dosage: 100 MG, Q2W
     Route: 041
     Dates: start: 20061127, end: 20070221
  2. PACLITAXEL [Concomitant]
     Indication: METASTASES TO LYMPH NODES
     Dates: start: 20061128, end: 20070221
  3. FARESTON [Concomitant]
     Indication: DRUG USE FOR UNKNOWN INDICATION
     Dates: start: 20061205, end: 20070305
  4. NOLVADEX [Concomitant]
     Indication: DRUG USE FOR UNKNOWN INDICATION
     Dates: start: 20061116, end: 20061204
  5. FURTULON [Concomitant]
     Indication: DRUG USE FOR UNKNOWN INDICATION
     Dates: start: 20061120, end: 20061204

REACTIONS (2)
  - GASTRITIS EROSIVE [None]
  - INTERSTITIAL LUNG DISEASE [None]
